FAERS Safety Report 15757742 (Version 1)
Quarter: 2018Q4

REPORT INFORMATION
  Report Type: Spontaneous
  Country: GB (occurrence: GB)
  Receive Date: 20181225
  Receipt Date: 20181225
  Transmission Date: 20190205
  Serious: Yes (Death)
  Sender: FDA-Public Use
  Company Number: GB-ROCHE-2235682

PATIENT
  Age: 43 Year
  Sex: Male
  Weight: 73.2 kg

DRUGS (15)
  1. RIBAVIRIN. [Suspect]
     Active Substance: RIBAVIRIN
     Indication: CHRONIC HEPATITIS C
     Dosage: 400MG MORNING, 600MG NIGHT
     Route: 048
     Dates: start: 20181025
  2. ERGOCALCIFEROL. [Concomitant]
     Active Substance: ERGOCALCIFEROL
  3. CALCIUM PANTOTHENATE [Concomitant]
     Active Substance: CALCIUM PANTOTHENATE
  4. FOLIC ACID. [Concomitant]
     Active Substance: FOLIC ACID
  5. EPCLUSA [Suspect]
     Active Substance: SOFOSBUVIR\VELPATASVIR
     Indication: CHRONIC HEPATITIS C
     Dosage: 400MG/100MG
     Route: 048
     Dates: start: 20181026
  6. BIOTIN [Concomitant]
     Active Substance: BIOTIN
  7. THIAMINE NITRATE [Concomitant]
  8. RISPERIDONE. [Concomitant]
     Active Substance: RISPERIDONE
     Route: 065
  9. ASCORBIC ACID. [Concomitant]
     Active Substance: ASCORBIC ACID
  10. RETINOL ACETATE [Concomitant]
  11. CYANOCOBALAMIN. [Concomitant]
     Active Substance: CYANOCOBALAMIN
  12. RIBOFLAVINE [Concomitant]
     Active Substance: RIBOFLAVIN
  13. FERROUS FUMARATE [Concomitant]
     Active Substance: FERROUS FUMARATE
     Route: 065
  14. POTASSIUM IODIDE. [Concomitant]
     Active Substance: POTASSIUM IODIDE
     Route: 065
  15. NICOTINAMIDE [Concomitant]
     Active Substance: NIACINAMIDE

REACTIONS (1)
  - Death [Fatal]
